FAERS Safety Report 8258907-3 (Version None)
Quarter: 2012Q2

REPORT INFORMATION
  Report Type: 
  Country: None (occurrence: None)
  Receive Date: 20120404
  Receipt Date: 20120326
  Transmission Date: 20120825
  Serious: No
  Sender: FDA-Public Use
  Company Number: US-ELI_LILLY_AND_COMPANY-US201202001186

PATIENT
  Sex: Female

DRUGS (1)
  1. FORTEO [Suspect]
     Indication: OSTEOPOROSIS
     Dosage: UNK
     Dates: start: 20101201, end: 20120101

REACTIONS (2)
  - INTESTINAL POLYP [None]
  - INTENTIONAL DRUG MISUSE [None]
